FAERS Safety Report 4389170-1 (Version None)
Quarter: 2004Q3

REPORT INFORMATION
  Report Type: 
  Country: None (occurrence: None)
  Receive Date: 20040701
  Receipt Date: 20040701
  Transmission Date: 20050211
  Serious: No
  Sender: FDA-Public Use
  Company Number: None

PATIENT
  Sex: Male
  Weight: 82 kg

DRUGS (1)
  1. GOSERELIN [Suspect]
     Indication: PROSTATE CANCER
     Dosage: 10.8 MG Q 3 MONTHS X 1

REACTIONS (2)
  - IMPLANT SITE HAEMORRHAGE [None]
  - MEDICAL DEVICE COMPLICATION [None]
